FAERS Safety Report 15431120 (Version 1)
Quarter: 2018Q3

REPORT INFORMATION
  Report Type: Spontaneous
  Country: US (occurrence: US)
  Receive Date: 20180926
  Receipt Date: 20180926
  Transmission Date: 20181010
  Serious: Yes (Hospitalization, Other)
  Sender: FDA-Public Use
  Company Number: US-INDIVIOR LIMITED-INDV-103224-2017

PATIENT
  Age: 0 Year
  Sex: Female

DRUGS (6)
  1. XANAX [Suspect]
     Active Substance: ALPRAZOLAM
     Indication: GENERALISED ANXIETY DISORDER
     Dosage: 0.25 MG, UNK
     Route: 064
  2. SUBOXONE [Suspect]
     Active Substance: BUPRENORPHINE HYDROCHLORIDE\NALOXONE HYDROCHLORIDE
     Indication: DRUG DEPENDENCE
     Dosage: 8 MG, BID
     Route: 064
     Dates: start: 20160615, end: 20170518
  3. SUBOXONE [Suspect]
     Active Substance: BUPRENORPHINE HYDROCHLORIDE\NALOXONE HYDROCHLORIDE
     Dosage: 8 MG, BID
     Route: 063
     Dates: start: 2017
  4. XANAX [Suspect]
     Active Substance: ALPRAZOLAM
     Dosage: 0.25 MG, UNK
     Route: 063
     Dates: start: 2017
  5. CLONIDINE. [Suspect]
     Active Substance: CLONIDINE
     Indication: SLEEP DISORDER
     Dosage: 0.1 MG, UNK
     Route: 064
  6. CLONIDINE. [Suspect]
     Active Substance: CLONIDINE
     Dosage: 0.1 MG, UNK
     Route: 063
     Dates: start: 2017

REACTIONS (3)
  - Foetal exposure during pregnancy [Recovered/Resolved]
  - Drug withdrawal syndrome neonatal [Unknown]
  - Exposure via breast milk [Not Recovered/Not Resolved]

NARRATIVE: CASE EVENT DATE: 20160815
